FAERS Safety Report 11108363 (Version 1)
Quarter: 2015Q2

REPORT INFORMATION
  Report Type: Spontaneous
  Country: DE (occurrence: DE)
  Receive Date: 20150512
  Receipt Date: 20150512
  Transmission Date: 20150821
  Serious: Yes (Other)
  Sender: FDA-Public Use
  Company Number: GXKR2015DE002411

PATIENT
  Sex: Female
  Weight: 58 kg

DRUGS (3)
  1. NASIC [Concomitant]
     Active Substance: DEXPANTHENOL\XYLOMETAZOLINE HYDROCHLORIDE
     Indication: NASOPHARYNGITIS
     Dosage: 4.2 - 5.6 GESTATIONAL WEEK: UNKNOWN DOSE
     Route: 045
     Dates: start: 20131207, end: 20131218
  2. IBUPROFEN. [Suspect]
     Active Substance: IBUPROFEN
     Indication: INTERVERTEBRAL DISC PROTRUSION
     Dosage: 800 [MG/D]/ UNKNOWN; HOW LONG IBUPROFEN WAS TAKEN AN IN WHICH EXACT DOSE
     Route: 048
  3. FOLIO FORTE [Concomitant]
     Active Substance: FOLIC ACID\VITAMINS
     Indication: PROPHYLAXIS OF NEURAL TUBE DEFECT
     Dosage: 0. - 40.1 GESTATIONAL WEEK: 0.8 [MG/D]
     Route: 048
     Dates: start: 20131107, end: 20140815

REACTIONS (1)
  - Premature separation of placenta [Recovered/Resolved]
